FAERS Safety Report 14655872 (Version 1)
Quarter: 2018Q1

REPORT INFORMATION
  Report Type: Spontaneous
  Country: TR (occurrence: TR)
  Receive Date: 20180319
  Receipt Date: 20180319
  Transmission Date: 20180509
  Serious: Yes (Life-Threatening, Hospitalization, Other)
  Sender: FDA-Public Use
  Company Number: TR-JNJFOC-20180315699

PATIENT
  Age: 62 Year
  Sex: Male
  Weight: 78 kg

DRUGS (2)
  1. IBRUTINIB [Suspect]
     Active Substance: IBRUTINIB
     Indication: MANTLE CELL LYMPHOMA
     Route: 048
     Dates: start: 20171024
  2. IBRUTINIB [Suspect]
     Active Substance: IBRUTINIB
     Indication: MANTLE CELL LYMPHOMA
     Route: 048

REACTIONS (5)
  - Off label use [Unknown]
  - Incorrect dose administered [Unknown]
  - Gastritis [Not Recovered/Not Resolved]
  - Haematemesis [Not Recovered/Not Resolved]
  - Thrombocytopenia [Unknown]

NARRATIVE: CASE EVENT DATE: 20171024
